FAERS Safety Report 10512667 (Version 2)
Quarter: 2014Q4

REPORT INFORMATION
  Report Type: Spontaneous
  Country: US (occurrence: US)
  Receive Date: 20141012
  Receipt Date: 20141028
  Transmission Date: 20150528
  Serious: Yes (Other)
  Sender: FDA-Public Use
  Company Number: US-009507513-1410USA002656

PATIENT
  Age: 57 Year
  Sex: Male

DRUGS (1)
  1. NASONEX [Suspect]
     Active Substance: MOMETASONE FUROATE
     Indication: NASAL CONGESTION
     Dosage: TWO SQUIRTS EACH NOSTRIL ONCE DAILY
     Route: 045
     Dates: start: 20140918

REACTIONS (2)
  - Product container issue [Unknown]
  - Deafness [Unknown]

NARRATIVE: CASE EVENT DATE: 20140930
